FAERS Safety Report 4651974-5 (Version None)
Quarter: 2005Q2

REPORT INFORMATION
  Report Type: 
  Country: None (occurrence: None)
  Receive Date: 20050502
  Receipt Date: 20050502
  Transmission Date: 20051028
  Serious: No
  Sender: FDA-Public Use
  Company Number: None

PATIENT
  Sex: Male

DRUGS (1)
  1. RETEVASE [Suspect]
     Indication: ACUTE MYOCARDIAL INFARCTION
     Dosage: 10 UNITS IV OVER 2 MIN
     Route: 042

REACTIONS (2)
  - CARDIO-RESPIRATORY ARREST [None]
  - HAEMORRHAGE INTRACRANIAL [None]
